FAERS Safety Report 9269891 (Version 2)
Quarter: 2013Q3

REPORT INFORMATION
  Report Type: Spontaneous
  Country: US (occurrence: US)
  Receive Date: 20130503
  Receipt Date: 20130729
  Transmission Date: 20140515
  Serious: Yes (Death, Hospitalization, Other)
  Sender: FDA-Public Use
  Company Number: US-B.I. PHARMACEUTICALS,INC./RIDGEFIELD-2013-BI-12224BP

PATIENT
  Age: 84 Year
  Sex: Male
  Weight: 69.4 kg

DRUGS (13)
  1. PRADAXA [Suspect]
     Indication: ANTICOAGULANT THERAPY
     Dosage: 75 MG
     Dates: start: 20110408, end: 20110511
  2. CILOSTAZOL [Concomitant]
     Dosage: 100 MG
     Route: 048
  3. COLACE [Concomitant]
     Dosage: 200 MG
     Route: 048
  4. CARVEDILOL [Concomitant]
     Dosage: 25 MG
     Route: 048
     Dates: start: 20071007
  5. FUROSEMIDE [Concomitant]
     Dosage: 40 MG
     Route: 048
     Dates: start: 20071007
  6. ZETIA [Concomitant]
     Dosage: 10 MG
     Route: 048
  7. PRAVASTATIN [Concomitant]
     Dosage: 80 MG
     Route: 048
  8. ASPIRIN [Concomitant]
     Dosage: 162 MG
     Route: 048
  9. POTASSIUM [Concomitant]
     Dosage: 40 MEQ
     Route: 048
     Dates: start: 20051221
  10. GLYBURIDE [Concomitant]
     Route: 048
  11. FERROUS GLUCONATE [Concomitant]
     Dosage: 648 MG
     Route: 048
  12. AMIODARONE [Concomitant]
     Dosage: 400 MG
     Route: 048
  13. DEXAMETHASONE [Concomitant]

REACTIONS (3)
  - Cerebral haematoma [Fatal]
  - Cerebral haemorrhage [Fatal]
  - Loss of consciousness [Unknown]
